FAERS Safety Report 5067842-3 (Version None)
Quarter: 2006Q3

REPORT INFORMATION
  Report Type: 
  Country: None (occurrence: None)
  Receive Date: 20060717
  Receipt Date: 20051109
  Transmission Date: 20061208
  Serious: Yes (Hospitalization)
  Sender: FDA-Public Use
  Company Number: 2005-11-0542

PATIENT
  Age: 62 Year
  Sex: Male
  Weight: 90 kg

DRUGS (5)
  1. INTEGRILIN [Suspect]
     Dosage: INTRAVENOUS
     Route: 042
  2. HEPARIN [Suspect]
     Dosage: 1000 U/HR INTRAVENOUS
     Route: 042
     Dates: start: 20051101
  3. PLAVIX [Suspect]
     Dosage: 300 MG X1 ORAL
     Route: 048
     Dates: start: 20051101, end: 20051101
  4. ASPIRIN [Suspect]
     Dosage: 325 MG QD
     Dates: start: 20051101
  5. PROTONIX [Concomitant]

REACTIONS (1)
  - HAEMATEMESIS [None]
